FAERS Safety Report 20700389 (Version 1)
Quarter: 2022Q2

REPORT INFORMATION
  Report Type: Spontaneous
  Country: US (occurrence: None)
  Receive Date: 20220410
  Receipt Date: 20220410
  Transmission Date: 20220721
  Serious: Yes (Other)
  Sender: FDA-Public Use
  Company Number: None

PATIENT
  Age: 40 Year
  Sex: Female
  Weight: 128.25 kg

DRUGS (21)
  1. GEMTESA [Suspect]
     Active Substance: VIBEGRON
     Indication: Hypertonic bladder
     Dosage: OTHER QUANTITY : 1 TABLET(S)?FREQUENCY : DAILY?
     Route: 048
     Dates: start: 20220324, end: 20220406
  2. ENBREL [Concomitant]
     Active Substance: ETANERCEPT
  3. NAPROXEN [Concomitant]
     Active Substance: NAPROXEN
  4. METFORMIN [Concomitant]
     Active Substance: METFORMIN HYDROCHLORIDE
  5. METOPROLOL SUCCINATE [Concomitant]
     Active Substance: METOPROLOL SUCCINATE
  6. MAGNESIUM OXIDE [Concomitant]
     Active Substance: MAGNESIUM OXIDE
  7. ADDERALL [Concomitant]
     Active Substance: AMPHETAMINE ASPARTATE\AMPHETAMINE SULFATE\DEXTROAMPHETAMINE SACCHARATE\DEXTROAMPHETAMINE SULFATE
  8. HYDROXYZINE [Concomitant]
     Active Substance: HYDROXYZINE HYDROCHLORIDE
  9. CYCLOBENZAPRINE [Concomitant]
     Active Substance: CYCLOBENZAPRINE
  10. GABAPENTIN [Concomitant]
     Active Substance: GABAPENTIN
  11. CYCLOBENZAPRINE [Concomitant]
     Active Substance: CYCLOBENZAPRINE
  12. NORETHINDRONE [Concomitant]
     Active Substance: NORETHINDRONE
  13. NORCO [Concomitant]
     Active Substance: ACETAMINOPHEN\HYDROCODONE BITARTRATE
  14. SUMATRIPTAN [Concomitant]
     Active Substance: SUMATRIPTAN
  15. FUROSEMIDE [Concomitant]
     Active Substance: FUROSEMIDE
  16. VITAMIN D [Concomitant]
     Active Substance: VITAMIN D NOS
  17. MELATONIN [Concomitant]
     Active Substance: MELATONIN
  18. BENADRYL TABLETS + TOPICAL SPRAY [Concomitant]
  19. ZYRTEC [Concomitant]
     Active Substance: CETIRIZINE HYDROCHLORIDE
  20. CLARITIN [Concomitant]
     Active Substance: LORATADINE
  21. HYDROCORTISONE [Concomitant]
     Active Substance: HYDROCORTISONE

REACTIONS (17)
  - Hypersensitivity [None]
  - Rash pruritic [None]
  - Lacrimation increased [None]
  - Rhinorrhoea [None]
  - Respiratory tract congestion [None]
  - Dry mouth [None]
  - Formication [None]
  - Rash [None]
  - Acne [None]
  - Scab [None]
  - Secretion discharge [None]
  - Acne [None]
  - Drug ineffective [None]
  - Therapeutic product effect incomplete [None]
  - Therapy interrupted [None]
  - Scab [None]
  - Blister [None]

NARRATIVE: CASE EVENT DATE: 20220404
